FAERS Safety Report 16759649 (Version 1)
Quarter: 2019Q3

REPORT INFORMATION
  Report Type: Spontaneous
  Country: US (occurrence: US)
  Receive Date: 20190712
  Receipt Date: 20190712
  Transmission Date: 20191005
  Serious: Yes (Death)
  Sender: FDA-Public Use
  Company Number: None

PATIENT
  Age: 87 Year
  Sex: Male

DRUGS (1)
  1. CINACALCET. [Suspect]
     Active Substance: CINACALCET
     Indication: HYPERCALCAEMIA
     Route: 048
     Dates: start: 20160106, end: 201907

REACTIONS (1)
  - Death [None]

NARRATIVE: CASE EVENT DATE: 20190712
